FAERS Safety Report 6374115-5 (Version None)
Quarter: 2009Q3

REPORT INFORMATION
  Report Type: 
  Country: None (occurrence: None)
  Receive Date: 20090924
  Receipt Date: 20090619
  Transmission Date: 20100115
  Serious: No
  Sender: FDA-Public Use
  Company Number: US-ASTRAZENECA-2009UW16217

PATIENT
  Age: 35 Year
  Sex: Female
  Weight: 113.4 kg

DRUGS (6)
  1. SEROQUEL [Suspect]
     Indication: SCHIZOPHRENIA, PARANOID TYPE
     Dosage: 1200 MG WEANED TO 100 MG, DAY
     Route: 048
     Dates: start: 20050101
  2. ABILIFY [Concomitant]
  3. CLONOPIN [Concomitant]
  4. AMBIEN [Concomitant]
  5. PRINIVIL [Concomitant]
  6. NORVASC [Concomitant]

REACTIONS (2)
  - HYPERTENSION [None]
  - TREMOR [None]
